FAERS Safety Report 4628082-2 (Version None)
Quarter: 2005Q2

REPORT INFORMATION
  Report Type: 
  Country: None (occurrence: None)
  Receive Date: 20050401
  Receipt Date: 20050321
  Transmission Date: 20051028
  Serious: Yes (Death, Other)
  Sender: FDA-Public Use
  Company Number: 05-03-0485

PATIENT
  Age: 82 Year
  Sex: Male
  Weight: 65 kg

DRUGS (3)
  1. GLIBENCLAMIDE [Suspect]
     Indication: DIABETES MELLITUS
     Dosage: 5MG OD ORAL
     Route: 048
     Dates: end: 20041226
  2. ASPIRIN [Concomitant]
  3. CO-AMILOFRUSE [Concomitant]

REACTIONS (5)
  - BRAIN DAMAGE [None]
  - CONDITION AGGRAVATED [None]
  - HYPOGLYCAEMIA [None]
  - RENAL FAILURE CHRONIC [None]
  - THERAPY NON-RESPONDER [None]
